FAERS Safety Report 25112334 (Version 1)
Quarter: 2025Q1

REPORT INFORMATION
  Report Type: Report from Study
  Country: PH (occurrence: PH)
  Receive Date: 20250324
  Receipt Date: 20250324
  Transmission Date: 20250409
  Serious: Yes (Death, Hospitalization)
  Sender: OTSUKA
  Company Number: PH-MMM-Otsuka-WGXAP396

PATIENT
  Sex: Female

DRUGS (2)
  1. TOLVAPTAN [Suspect]
     Active Substance: TOLVAPTAN
     Indication: Swelling
     Dosage: 0.5 DF, BID (15 MG HALF TABLET 2 TIMES A DAY)
     Route: 048
     Dates: start: 20220922
  2. TOLVAPTAN [Suspect]
     Active Substance: TOLVAPTAN
     Indication: Cardiomegaly

REACTIONS (4)
  - Cardiomegaly [Fatal]
  - Swelling [Fatal]
  - Blood creatinine abnormal [Unknown]
  - Seizure [Unknown]
